FAERS Safety Report 9695719 (Version 1)
Quarter: 2013Q4

REPORT INFORMATION
  Report Type: Spontaneous
  Country: US (occurrence: None)
  Receive Date: 20131118
  Receipt Date: 20131118
  Transmission Date: 20140711
  Serious: No
  Sender: FDA-Public Use
  Company Number: None

PATIENT
  Age: 34 Year
  Sex: Female
  Weight: 62.9 kg

DRUGS (12)
  1. FERAHEME [Suspect]
     Indication: ANAEMIA
     Dates: start: 20131111, end: 20131111
  2. ATROPINE [Concomitant]
  3. MICONAZOLE 2 % TOPICAL CREAM [Concomitant]
  4. PANTOPRAZOLE [Concomitant]
  5. FLUCONAZOLE [Concomitant]
  6. FUROSEMIDE [Concomitant]
  7. LEVOFLOXACIN [Concomitant]
  8. CIPROFLOXACIN [Concomitant]
  9. CEFTRIAXONE [Concomitant]
  10. ENOXAPARIN [Concomitant]
  11. MEROPENEM [Concomitant]
  12. TOBRAMYCIN [Concomitant]

REACTIONS (4)
  - Dyspnoea [None]
  - Stridor [None]
  - Eyelid oedema [None]
  - Swelling face [None]
